FAERS Safety Report 23946231 (Version 2)
Quarter: 2024Q2

REPORT INFORMATION
  Report Type: Report from Study
  Country: CA (occurrence: CA)
  Receive Date: 20240606
  Receipt Date: 20240620
  Transmission Date: 20240716
  Serious: Yes (Death, Other)
  Sender: FDA-Public Use
  Company Number: CA-SANDOZ-SDZ2024CA055410

PATIENT
  Age: 46 Year
  Sex: Female

DRUGS (1)
  1. FULVESTRANT [Suspect]
     Active Substance: FULVESTRANT
     Indication: Product used for unknown indication
     Dosage: 250 MG, OTHER, 250 MG/5ML 0, 14, 28 X DAYS
     Route: 065
     Dates: start: 20230414, end: 20240109

REACTIONS (1)
  - Death [Fatal]

NARRATIVE: CASE EVENT DATE: 20240109
